FAERS Safety Report 20304596 (Version 1)
Quarter: 2022Q1

REPORT INFORMATION
  Report Type: Spontaneous
  Country: US (occurrence: None)
  Receive Date: 20220105
  Receipt Date: 20220105
  Transmission Date: 20220423
  Serious: No
  Sender: FDA-Public Use
  Company Number: None

PATIENT
  Age: 63 Year
  Weight: 87.3 kg

DRUGS (4)
  1. PROMACTA [Suspect]
     Active Substance: ELTROMBOPAG OLAMINE
     Indication: Product used for unknown indication
     Dosage: FREQUENCY : DAILY;?
     Route: 048
     Dates: start: 20210904
  2. MELOXICAM [Concomitant]
     Active Substance: MELOXICAM
  3. AMBIEN [Concomitant]
     Active Substance: ZOLPIDEM TARTRATE
  4. LOSARTAN [Concomitant]
     Active Substance: LOSARTAN

REACTIONS (6)
  - Muscle spasms [None]
  - Decreased appetite [None]
  - Weight decreased [None]
  - Oedema [None]
  - Pollakiuria [None]
  - Frequent bowel movements [None]

NARRATIVE: CASE EVENT DATE: 20220105
